FAERS Safety Report 23529386 (Version 1)
Quarter: 2024Q1

REPORT INFORMATION
  Report Type: Spontaneous
  Country: US (occurrence: US)
  Receive Date: 20240216
  Receipt Date: 20240216
  Transmission Date: 20240410
  Serious: Yes (Other)
  Sender: FDA-Public Use
  Company Number: US-TOLMAR, INC.-24US046862

PATIENT
  Age: 16 Year
  Sex: Female

DRUGS (4)
  1. ELIGARD [Suspect]
     Active Substance: LEUPROLIDE ACETATE
     Indication: Menstrual disorder
     Dosage: UNK
  2. ELIGARD [Suspect]
     Active Substance: LEUPROLIDE ACETATE
     Indication: Menstrual disorder
     Dosage: UNK
  3. UNSPECIFIED INGREDIENT [Concomitant]
     Active Substance: UNSPECIFIED INGREDIENT
     Indication: Vaginal haemorrhage
     Dosage: 5 MILLIGRAM, QD
  4. UNSPECIFIED INGREDIENT [Concomitant]
     Active Substance: UNSPECIFIED INGREDIENT
     Dosage: 5 MILLIGRAM, QD

REACTIONS (6)
  - Acute graft versus host disease oral [Unknown]
  - Chronic graft versus host disease oral [Unknown]
  - Acute graft versus host disease in skin [Unknown]
  - Chronic graft versus host disease in skin [Unknown]
  - Vaginal haemorrhage [Unknown]
  - Off label use [Unknown]
